FAERS Safety Report 4342923-8 (Version None)
Quarter: 2004Q1

REPORT INFORMATION
  Report Type: 
  Country: None (occurrence: None)
  Receive Date: 20040325
  Receipt Date: 20040123
  Transmission Date: 20041129
  Serious: No
  Sender: FDA-Public Use
  Company Number: USA030741857

PATIENT
  Age: 67 Year
  Sex: Female
  Weight: 62 kg

DRUGS (11)
  1. FORTEO [Suspect]
     Indication: OSTEOPOROSIS
     Dosage: 20 UG/DAY
     Dates: start: 20030528
  2. DAYPRO [Concomitant]
  3. ZOCOR [Concomitant]
  4. MULTI-VITAMIN [Concomitant]
  5. CALCIUM [Concomitant]
  6. VITAMIN B-12 [Concomitant]
  7. FOLIC ACID [Concomitant]
  8. ASPIRIN [Concomitant]
  9. FLURBIPROFEN [Concomitant]
  10. PEPTO-BISMOL (BISMUTH SUBSALICYLATE) [Concomitant]
  11. IMODIUM [Concomitant]

REACTIONS (13)
  - ACCIDENTAL OVERDOSE [None]
  - ARTHRALGIA [None]
  - BLOOD CALCIUM INCREASED [None]
  - DIARRHOEA [None]
  - DIZZINESS [None]
  - FATIGUE [None]
  - INFLAMMATORY BOWEL DISEASE [None]
  - INJECTION SITE ERYTHEMA [None]
  - INJECTION SITE WARMTH [None]
  - NAUSEA [None]
  - PAIN IN EXTREMITY [None]
  - SKIN DISCOLOURATION [None]
  - WEIGHT DECREASED [None]
